FAERS Safety Report 6177060-3 (Version None)
Quarter: 2009Q2

REPORT INFORMATION
  Report Type: 
  Country: None (occurrence: None)
  Receive Date: 20090504
  Receipt Date: 20090424
  Transmission Date: 20091009
  Serious: Yes (Death, Hospitalization, Other)
  Sender: FDA-Public Use
  Company Number: JP-ABBOTT-08P-087-0470006-00

PATIENT
  Age: 74 Year
  Sex: Male

DRUGS (10)
  1. LEUPLIN SR FOR INJECTION KIT [Suspect]
     Indication: PROSTATE CANCER STAGE IV
     Route: 058
     Dates: start: 20060815, end: 20070202
  2. CASODEX [Concomitant]
     Indication: PROSTATE CANCER STAGE IV
     Route: 048
     Dates: end: 20061007
  3. MAGNESIUM OXIDE [Concomitant]
     Indication: CONSTIPATION
     Route: 048
  4. NOVAMIN [Concomitant]
     Indication: NAUSEA
     Route: 048
  5. OXYCONTIN [Concomitant]
     Indication: CANCER PAIN
     Route: 048
  6. PURSENNID [Concomitant]
     Indication: CONSTIPATION
     Route: 048
     Dates: end: 20061113
  7. DUROTEP [Concomitant]
     Indication: CANCER PAIN
     Route: 062
     Dates: start: 20061113
  8. FLUTAMIDE [Concomitant]
     Indication: PROSTATE CANCER STAGE IV
     Route: 048
     Dates: start: 20070105, end: 20070118
  9. DECADRON [Concomitant]
     Indication: PROSTATE CANCER STAGE IV
     Route: 048
     Dates: start: 20070119
  10. TAXOTERE [Concomitant]
     Indication: PROSTATE CANCER STAGE IV
     Route: 042
     Dates: start: 20070511, end: 20070812

REACTIONS (6)
  - ASTHENIA [None]
  - GASTRIC ULCER [None]
  - PNEUMONIA ASPIRATION [None]
  - PROSTATE CANCER [None]
  - RECURRENT CANCER [None]
  - STRESS [None]
